FAERS Safety Report 25812291 (Version 1)
Quarter: 2025Q3

REPORT INFORMATION
  Report Type: Spontaneous
  Country: US (occurrence: US)
  Receive Date: 20250917
  Receipt Date: 20250917
  Transmission Date: 20251020
  Serious: No
  Sender: BAUSCH AND LOMB
  Company Number: US-BAUSCHBL-2025BNL016116

PATIENT
  Sex: Female

DRUGS (4)
  1. ALAWAY [Suspect]
     Active Substance: KETOTIFEN FUMARATE
     Indication: Eye discharge
     Dosage: APPLYING 1 DROP TWICE DAILY AS NEEDED
     Route: 047
     Dates: start: 202509
  2. ALAWAY [Suspect]
     Active Substance: KETOTIFEN FUMARATE
     Indication: Product use in unapproved indication
  3. TERBINAFINE [Concomitant]
     Active Substance: TERBINAFINE
     Indication: Routine health maintenance
     Route: 065
  4. TERBINAFINE [Concomitant]
     Active Substance: TERBINAFINE
     Indication: Nail discolouration

REACTIONS (5)
  - Dizziness [Not Recovered/Not Resolved]
  - Illness [Not Recovered/Not Resolved]
  - Somnolence [Not Recovered/Not Resolved]
  - Eyelid disorder [Not Recovered/Not Resolved]
  - Product use in unapproved indication [Unknown]

NARRATIVE: CASE EVENT DATE: 20250901
